FAERS Safety Report 13727160 (Version 1)
Quarter: 2017Q3

REPORT INFORMATION
  Report Type: Spontaneous
  Country: US (occurrence: US)
  Receive Date: 20170707
  Receipt Date: 20170707
  Transmission Date: 20171127
  Serious: Yes (Hospitalization)
  Sender: FDA-Public Use
  Company Number: None

PATIENT
  Age: 69 Year
  Sex: Male

DRUGS (12)
  1. TAMSULOSIN [Concomitant]
     Active Substance: TAMSULOSIN
  2. HYDROCO/APAP [Concomitant]
     Active Substance: ACETAMINOPHEN\HYDROCODONE
  3. LANTUS [Concomitant]
     Active Substance: INSULIN GLARGINE
  4. ATORVASTATIN [Concomitant]
     Active Substance: ATORVASTATIN
  5. FUROSEMIDE. [Concomitant]
     Active Substance: FUROSEMIDE
  6. CARVEDILOL. [Concomitant]
     Active Substance: CARVEDILOL
  7. BUTRANS [Concomitant]
     Active Substance: BUPRENORPHINE
  8. GABAPENTIN. [Concomitant]
     Active Substance: GABAPENTIN
  9. DICLOFENAC [Concomitant]
     Active Substance: DICLOFENAC
  10. DULOXETINE. [Concomitant]
     Active Substance: DULOXETINE
  11. SUTENT [Suspect]
     Active Substance: SUNITINIB MALATE
     Indication: RENAL CANCER
     Route: 048
     Dates: start: 20150121
  12. NOVOLOG [Concomitant]
     Active Substance: INSULIN ASPART

REACTIONS (1)
  - Blood glucose decreased [None]

NARRATIVE: CASE EVENT DATE: 20170615
